FAERS Safety Report 7170015-1 (Version None)
Quarter: 2010Q4

REPORT INFORMATION
  Report Type: 
  Country: None (occurrence: None)
  Receive Date: 20101217
  Receipt Date: 20101208
  Transmission Date: 20110411
  Serious: Yes (Hospitalization)
  Sender: FDA-Public Use
  Company Number: FR-JNJFOC-20100809113

PATIENT
  Sex: Male
  Weight: 89 kg

DRUGS (7)
  1. USTEKINUMAB [Suspect]
     Indication: PSORIASIS
     Route: 058
  2. USTEKINUMAB [Suspect]
     Route: 058
  3. USTEKINUMAB [Suspect]
     Route: 058
  4. USTEKINUMAB [Suspect]
     Route: 058
  5. USTEKINUMAB [Suspect]
     Route: 058
  6. METHOTREXATE [Suspect]
     Indication: PSORIASIS
     Route: 048
  7. PAROXETINE [Concomitant]
     Indication: ILL-DEFINED DISORDER

REACTIONS (2)
  - LOSS OF CONSCIOUSNESS [None]
  - VERTIGO [None]
